FAERS Safety Report 7270909-2 (Version None)
Quarter: 2011Q1

REPORT INFORMATION
  Report Type: 
  Country: None (occurrence: None)
  Receive Date: 20110202
  Receipt Date: 20110120
  Transmission Date: 20110831
  Serious: Yes (Other)
  Sender: FDA-Public Use
  Company Number: IT-MYLANLABS-2011S1001388

PATIENT
  Age: 84 Year
  Sex: Female

DRUGS (1)
  1. SIMVASTATIN [Suspect]
     Indication: HYPERCHOLESTEROLAEMIA
     Route: 048
     Dates: start: 20100501, end: 20100501

REACTIONS (2)
  - VISUAL IMPAIRMENT [None]
  - HEADACHE [None]
